FAERS Safety Report 9495329 (Version 1)
Quarter: 2013Q3

REPORT INFORMATION
  Report Type: Spontaneous
  Country: US (occurrence: US)
  Receive Date: 20130903
  Receipt Date: 20130903
  Transmission Date: 20140515
  Serious: Yes (Hospitalization)
  Sender: FDA-Public Use
  Company Number: US-GLAXOSMITHKLINE-A1039140A

PATIENT
  Age: 45 Year
  Sex: Female

DRUGS (4)
  1. ADVAIR [Suspect]
     Indication: ASTHMA
     Dosage: 1PUFF TWICE PER DAY
     Route: 055
  2. VENTOLIN [Concomitant]
  3. SINGULAIR [Concomitant]
  4. PREDNISONE [Concomitant]

REACTIONS (3)
  - Oxygen saturation decreased [Recovering/Resolving]
  - Drug ineffective [Unknown]
  - Off label use [Unknown]
